FAERS Safety Report 16807026 (Version 1)
Quarter: 2019Q3

REPORT INFORMATION
  Report Type: Spontaneous
  Country: RU (occurrence: RU)
  Receive Date: 20190913
  Receipt Date: 20190913
  Transmission Date: 20191005
  Serious: Yes (Hospitalization, Other)
  Sender: FDA-Public Use
  Company Number: RU-GLAXOSMITHKLINE-RU2019EME165895

PATIENT

DRUGS (1)
  1. NUCALA [Suspect]
     Active Substance: MEPOLIZUMAB
     Indication: PRODUCT USED FOR UNKNOWN INDICATION
     Dosage: UNK

REACTIONS (5)
  - Diarrhoea [Unknown]
  - Weight decreased [Unknown]
  - Asthenia [Unknown]
  - Enterocolitis haemorrhagic [Unknown]
  - Discomfort [Unknown]

NARRATIVE: CASE EVENT DATE: 201907
